FAERS Safety Report 7065439 (Version 7)
Quarter: 2013Q2

REPORT INFORMATION
  Report Type: Report from Study
  Country: CA (occurrence: CA)
  Receive Date: 20090728
  Receipt Date: 20130425
  Transmission Date: 20140414
  Serious: Yes (Hospitalization, Other)
  Sender: FDA-Public Use
  Company Number: PHHY2009CA29897

PATIENT
  Age: 70 Year
  Sex: Female
  Weight: 115 kg

DRUGS (3)
  1. EXJADE [Suspect]
     Indication: IRON OVERLOAD
     Dosage: 3000 MG, UNK
     Route: 048
     Dates: start: 200803
  2. EXJADE [Suspect]
     Dosage: 3500 MG, QD
     Route: 048
     Dates: start: 201212
  3. BLOOD CELLS, PACKED HUMAN [Concomitant]
     Dosage: 2 U, BIW

REACTIONS (16)
  - Femoral neck fracture [Unknown]
  - Limb deformity [Unknown]
  - Tenderness [Unknown]
  - Arthralgia [Unknown]
  - Weight bearing difficulty [Unknown]
  - Groin pain [Unknown]
  - Myalgia [Unknown]
  - Abasia [Unknown]
  - Abdominal discomfort [Unknown]
  - Local swelling [Unknown]
  - Leukaemia [Unknown]
  - Blood pressure increased [Unknown]
  - White blood cell count increased [Unknown]
  - Blood glucose increased [Unknown]
  - Weight fluctuation [Unknown]
  - Fatigue [Not Recovered/Not Resolved]
